FAERS Safety Report 9571082 (Version 1)
Quarter: 2013Q4

REPORT INFORMATION
  Report Type: Spontaneous
  Country: BR (occurrence: BR)
  Receive Date: 20131001
  Receipt Date: 20131001
  Transmission Date: 20140711
  Serious: Yes (Death, Other)
  Sender: FDA-Public Use
  Company Number: BR-SA-2013SA096169

PATIENT
  Sex: Female

DRUGS (1)
  1. CEREZYME [Suspect]
     Indication: GAUCHER^S DISEASE
     Route: 042
     Dates: start: 19981201, end: 201309

REACTIONS (5)
  - Myocardial infarction [Fatal]
  - Epilepsy [Unknown]
  - Asthenia [Unknown]
  - Speech disorder [Unknown]
  - Underdose [Unknown]
